FAERS Safety Report 9783286 (Version 1)
Quarter: 2013Q4

REPORT INFORMATION
  Report Type: Spontaneous
  Country: IT (occurrence: IT)
  Receive Date: 20131226
  Receipt Date: 20131226
  Transmission Date: 20140711
  Serious: Yes (Hospitalization)
  Sender: FDA-Public Use
  Company Number: IT-SA-2013SA131335

PATIENT
  Age: 75 Year
  Sex: Female

DRUGS (8)
  1. LASIX [Suspect]
     Indication: ASCITES
     Route: 048
     Dates: start: 20130412, end: 20130520
  2. ALDACTONE [Suspect]
     Indication: ASCITES
     Route: 048
     Dates: start: 20130412, end: 20130520
  3. RAMIPRIL [Concomitant]
  4. BISOPROLOL FUMARATE [Concomitant]
  5. PANTOPRAZOLE [Concomitant]
  6. ARIXTRA [Concomitant]
  7. NOVORAPID [Concomitant]
  8. LANTUS [Concomitant]

REACTIONS (7)
  - Dyspepsia [Recovered/Resolved]
  - Asthenia [Recovered/Resolved]
  - Abdominal pain upper [Recovered/Resolved]
  - Weight decreased [Recovered/Resolved]
  - Hypotension [Recovered/Resolved]
  - Hyponatraemia [Recovered/Resolved]
  - Hyperkalaemia [Recovered/Resolved]
